FAERS Safety Report 21204351 (Version 1)
Quarter: 2022Q3

REPORT INFORMATION
  Report Type: Spontaneous
  Country: ES (occurrence: ES)
  Receive Date: 20220812
  Receipt Date: 20220812
  Transmission Date: 20221027
  Serious: Yes (Life-Threatening, Other)
  Sender: FDA-Public Use
  Company Number: ES-AEMPS-1235285

PATIENT
  Age: 61 Year
  Sex: Female

DRUGS (9)
  1. ARIPIPRAZOLE [Suspect]
     Active Substance: ARIPIPRAZOLE
     Indication: Personality disorder
     Dosage: 10 MILLIGRAM (10.0 MG C/24 H)
     Route: 048
     Dates: start: 20191010
  2. PARACETAMOL CINFA [Concomitant]
     Indication: Product used for unknown indication
     Dosage: 1 GRAM
     Route: 048
     Dates: start: 20180117
  3. Deprax [Concomitant]
     Indication: Personality disorder
     Dosage: 100 MILLIGRAM(100.0 MG C/24 H NOC)
     Route: 048
     Dates: start: 20191009
  4. CALCIFEDIOL [Concomitant]
     Active Substance: CALCIFEDIOL
     Indication: Hypovitaminosis
     Dosage: 0.266 MILLIGRAM(0.266 MG C/15 DIAS)
     Route: 048
     Dates: start: 20220216
  5. CLORAZEPATE DIPOTASSIUM [Concomitant]
     Active Substance: CLORAZEPATE DIPOTASSIUM
     Indication: Anxiety
     Dosage: 5 MILLIGRAM(5.0 MG COCE)
     Route: 048
     Dates: start: 20190306
  6. Omeprazol sandoz [Concomitant]
     Indication: Abdominal pain
     Dosage: 20 MILLIGRAM(20.0 MG A-DE)
     Route: 048
     Dates: start: 20180320
  7. TOPIRAMATO RATIOPHARM [Concomitant]
     Indication: Depression
     Dosage: 100 MILLIGRAM
     Route: 048
     Dates: start: 20181126
  8. VENLAFAXINE HYDROCHLORIDE [Concomitant]
     Active Substance: VENLAFAXINE HYDROCHLORIDE
     Indication: Anxiety
     Dosage: 300 MILLIGRAM(300.0 MG DE)
     Route: 048
     Dates: start: 20190219
  9. METFORMIN HYDROCHLORIDE [Concomitant]
     Active Substance: METFORMIN HYDROCHLORIDE
     Indication: Diabetes mellitus
     Dosage: 450 MILLIGRAM(425.0 MG DE)
     Route: 048
     Dates: start: 20191017

REACTIONS (2)
  - Acute kidney injury [Recovered/Resolved]
  - Neuroleptic malignant syndrome [Recovering/Resolving]

NARRATIVE: CASE EVENT DATE: 20220721
